FAERS Safety Report 9537044 (Version 1)
Quarter: 2013Q3

REPORT INFORMATION
  Report Type: Spontaneous
  Country: US (occurrence: US)
  Receive Date: 20130919
  Receipt Date: 20130919
  Transmission Date: 20140515
  Serious: No
  Sender: FDA-Public Use
  Company Number: US-PFIZER INC-2013268908

PATIENT
  Age: 49 Year
  Sex: Female
  Weight: 118 kg

DRUGS (5)
  1. NEURONTIN [Suspect]
     Indication: POST HERPETIC NEURALGIA
     Dosage: 600 MG, 3X/DAY
     Dates: start: 201309
  2. PRAVASTATIN [Concomitant]
     Indication: BLOOD CHOLESTEROL INCREASED
     Dosage: 10 MG DAILY
  3. DIOVAN [Concomitant]
     Indication: HYPERTENSION
     Dosage: 10 MG DAILY
  4. SPIRIVA [Concomitant]
     Indication: CHRONIC OBSTRUCTIVE PULMONARY DISEASE
     Dosage: UNK
  5. ALBUTEROL [Concomitant]
     Indication: ASTHMA
     Dosage: UNK, (EVERY SIX HOURS) AS NEEDED

REACTIONS (3)
  - Nasopharyngitis [Unknown]
  - Headache [Unknown]
  - Swelling [Unknown]
